FAERS Safety Report 13419005 (Version 1)
Quarter: 2017Q2

REPORT INFORMATION
  Report Type: Spontaneous
  Country: US (occurrence: US)
  Receive Date: 20170407
  Receipt Date: 20170407
  Transmission Date: 20170830
  Serious: No
  Sender: FDA-Public Use
  Company Number: US-JNJFOC-20170200468

PATIENT
  Age: 34 Year
  Sex: Male

DRUGS (2)
  1. RISPERDAL CONSTA [Suspect]
     Active Substance: RISPERIDONE
     Indication: SCHIZOPHRENIA
     Dosage: INITIATED 4 YEARS AGO
     Route: 030
     Dates: start: 2013
  2. FLUPHENAZINE [Concomitant]
     Active Substance: FLUPHENAZINE
     Indication: SCHIZOPHRENIA
     Dosage: EVERY OTHER WEEK WHEN THE PATIENT DID NOT GET RISPERIDONE LAI
     Route: 065

REACTIONS (3)
  - Underdose [Unknown]
  - Procedural complication [Unknown]
  - Application site scar [Unknown]

NARRATIVE: CASE EVENT DATE: 20170131
